FAERS Safety Report 5022466-9 (Version None)
Quarter: 2006Q2

REPORT INFORMATION
  Report Type: 
  Country: None (occurrence: None)
  Receive Date: 20060609
  Receipt Date: 20060530
  Transmission Date: 20061013
  Serious: Yes (Hospitalization)
  Sender: FDA-Public Use
  Company Number: JP-ROCHE-450320

PATIENT
  Age: 37 Year
  Sex: Male
  Weight: 65 kg

DRUGS (4)
  1. ROCEPHIN [Suspect]
     Indication: TONSILLITIS
     Route: 041
     Dates: start: 20060522, end: 20060523
  2. NICHOLASE [Suspect]
     Indication: TONSILLITIS
     Route: 048
     Dates: start: 20060522, end: 20060524
  3. CALONAL [Suspect]
     Indication: PYREXIA
     Route: 048
     Dates: start: 20060522, end: 20060524
  4. BISOLVON [Suspect]
     Indication: PHARYNGOLARYNGEAL PAIN
     Dosage: OTHER INDICATION: COUGH
     Route: 055
     Dates: start: 20060522, end: 20060523

REACTIONS (2)
  - DRUG ERUPTION [None]
  - HAEMORRHAGE SUBCUTANEOUS [None]
